FAERS Safety Report 5082795-X (Version None)
Quarter: 2006Q3

REPORT INFORMATION
  Report Type: 
  Country: None (occurrence: None)
  Receive Date: 20060814
  Receipt Date: 20060802
  Transmission Date: 20061208
  Serious: Yes (Hospitalization)
  Sender: FDA-Public Use
  Company Number: 2006067190

PATIENT
  Age: 77 Year
  Sex: Female
  Weight: 98.8842 kg

DRUGS (12)
  1. SUTENT [Suspect]
     Indication: METASTATIC MALIGNANT MELANOMA
     Dosage: 25 MG (25 MG, D-8-28, Q28D) ORAL
     Route: 048
     Dates: start: 20060503, end: 20060521
  2. TEMOZOLOMIDE (TEMOZOLOMIDE) [Suspect]
     Indication: METASTATIC MALIGNANT MELANOMA
     Dosage: QD X7, QOWK (315 MG) ORAL
     Route: 048
     Dates: start: 20060426, end: 20060515
  3. SKELAXIN [Concomitant]
  4. VALSARTAN [Concomitant]
  5. INDAPAMIDE [Concomitant]
  6. CLARINEX [Concomitant]
  7. MOBIC [Concomitant]
  8. NEXIUM [Concomitant]
  9. PEPCID [Concomitant]
  10. QUININE SULFATE [Concomitant]
  11. SEREVENT [Concomitant]
  12. OTHER ANTI-ASTHMATICS, INHALANTS [Concomitant]

REACTIONS (24)
  - ANOREXIA [None]
  - ASTHENIA [None]
  - COLITIS [None]
  - DEHYDRATION [None]
  - DIARRHOEA [None]
  - DIVERTICULUM INTESTINAL [None]
  - DRY MOUTH [None]
  - FEBRILE NEUTROPENIA [None]
  - HEPATIC LESION [None]
  - LOCALISED INFECTION [None]
  - LYMPHOCYTE PERCENTAGE INCREASED [None]
  - METASTASES TO LYMPH NODES [None]
  - MUCOSAL INFLAMMATION [None]
  - NAUSEA [None]
  - PANCYTOPENIA [None]
  - PRODUCTIVE COUGH [None]
  - PYREXIA [None]
  - RENAL DISORDER [None]
  - RENAL FAILURE ACUTE [None]
  - SPLENIC LESION [None]
  - STOMATITIS [None]
  - URINARY TRACT INFECTION [None]
  - VOMITING [None]
  - WEIGHT DECREASED [None]
